FAERS Safety Report 14605960 (Version 1)
Quarter: 2018Q1

REPORT INFORMATION
  Report Type: Report from Study
  Country: JP (occurrence: JP)
  Receive Date: 20180307
  Receipt Date: 20180307
  Transmission Date: 20180509
  Serious: Yes (Hospitalization, Other)
  Sender: FDA-Public Use
  Company Number: JP-ALXN-A201801944AA

PATIENT
  Age: 24 Year
  Sex: Female
  Weight: 46 kg

DRUGS (6)
  1. SOLIRIS [Suspect]
     Active Substance: ECULIZUMAB
     Indication: PAROXYSMAL NOCTURNAL HAEMOGLOBINURIA
     Dosage: 600 MG, QW
     Route: 042
     Dates: start: 20161207, end: 20161228
  2. NEORAL [Concomitant]
     Active Substance: CYCLOSPORINE
     Dosage: 125 MG, DAILY
     Route: 048
     Dates: start: 20171208
  3. NEORAL [Concomitant]
     Active Substance: CYCLOSPORINE
     Dosage: 100 MG, DAILY
     Route: 065
  4. NEORAL [Concomitant]
     Active Substance: CYCLOSPORINE
     Indication: PAROXYSMAL NOCTURNAL HAEMOGLOBINURIA
     Dosage: 200 MG, DAILY
     Route: 065
     Dates: start: 20160418
  5. SOLIRIS [Suspect]
     Active Substance: ECULIZUMAB
     Dosage: 900 MG, Q2W
     Route: 042
     Dates: start: 20170106
  6. NEORAL [Concomitant]
     Active Substance: CYCLOSPORINE
     Dosage: UNK
     Route: 065

REACTIONS (4)
  - Haemolysis [Unknown]
  - Rash [Unknown]
  - Pyrexia [Recovered/Resolved]
  - Meningococcal bacteraemia [Recovered/Resolved]

NARRATIVE: CASE EVENT DATE: 20171219
